FAERS Safety Report 20945514 (Version 1)
Quarter: 2022Q2

REPORT INFORMATION
  Report Type: Spontaneous
  Country: US (occurrence: US)
  Receive Date: 20220610
  Receipt Date: 20220610
  Transmission Date: 20220720
  Serious: Yes (Other)
  Sender: FDA-Public Use
  Company Number: US-PFIZER INC-202200819596

PATIENT
  Age: 17 Year
  Sex: Female

DRUGS (4)
  1. EFFEXOR XR [Suspect]
     Active Substance: VENLAFAXINE HYDROCHLORIDE
     Dosage: 75 MG
  2. EFFEXOR XR [Suspect]
     Active Substance: VENLAFAXINE HYDROCHLORIDE
     Dosage: 37.5 MG
     Dates: end: 2022
  3. DEPLIN [CALCIUM LEVOMEFOLATE] [Concomitant]
     Dosage: UNK
  4. VITAMIN D3 [Concomitant]
     Active Substance: CHOLECALCIFEROL
     Dosage: UNK

REACTIONS (4)
  - Depression suicidal [Unknown]
  - Drug ineffective [Unknown]
  - Hunger [Unknown]
  - Weight increased [Unknown]
